FAERS Safety Report 7397798-X (Version None)
Quarter: 2011Q2

REPORT INFORMATION
  Report Type: 
  Country: None (occurrence: None)
  Receive Date: 20110406
  Receipt Date: 20110330
  Transmission Date: 20111010
  Serious: Yes (Other)
  Sender: FDA-Public Use
  Company Number: US-PFIZER INC-2011071891

PATIENT
  Age: 40 Year
  Sex: Female

DRUGS (5)
  1. GEODON [Suspect]
     Indication: POST-TRAUMATIC STRESS DISORDER
     Dosage: 240 MG PER DAY
  2. AMBIEN [Concomitant]
     Dosage: UNK
  3. ATIVAN [Concomitant]
     Dosage: UNK
  4. LITHIUM [Concomitant]
     Dosage: UNK
  5. CELEXA [Concomitant]
     Dosage: UNK

REACTIONS (6)
  - INTENTIONAL SELF-INJURY [None]
  - SOMNAMBULISM [None]
  - DYSARTHRIA [None]
  - GAIT DISTURBANCE [None]
  - DISORIENTATION [None]
  - RAPID EYE MOVEMENTS SLEEP ABNORMAL [None]
